FAERS Safety Report 13062227 (Version 3)
Quarter: 2017Q1

REPORT INFORMATION
  Report Type: Spontaneous
  Country: JP (occurrence: JP)
  Receive Date: 20161226
  Receipt Date: 20170222
  Transmission Date: 20170428
  Serious: Yes (Death, Hospitalization, Other)
  Sender: FDA-Public Use
  Company Number: JP-GILEAD-2016-0248210

PATIENT
  Age: 62 Year
  Sex: Male
  Weight: 58 kg

DRUGS (8)
  1. NEXIUM [Concomitant]
     Active Substance: ESOMEPRAZOLE MAGNESIUM
  2. ALDACTONE [Concomitant]
     Active Substance: SPIRONOLACTONE
  3. URSO [Concomitant]
     Active Substance: URSODIOL
  4. INSULIN [Concomitant]
     Active Substance: INSULIN NOS
  5. HARVONI [Suspect]
     Active Substance: LEDIPASVIR\SOFOSBUVIR
     Indication: HEPATITIS C
     Dosage: 1 DF, QD
     Route: 048
     Dates: start: 20161202, end: 20161207
  6. CARTIN                             /00878601/ [Concomitant]
  7. SEIBULE [Concomitant]
     Active Substance: MIGLITOL
  8. BELSOMRA [Concomitant]
     Active Substance: SUVOREXANT

REACTIONS (2)
  - Death [Fatal]
  - Gastrointestinal haemorrhage [Unknown]

NARRATIVE: CASE EVENT DATE: 20161206
